FAERS Safety Report 5128924-0 (Version None)
Quarter: 2006Q4

REPORT INFORMATION
  Report Type: 
  Country: None (occurrence: None)
  Receive Date: 20061017
  Receipt Date: 20061016
  Transmission Date: 20070319
  Serious: Yes (Hospitalization)
  Sender: FDA-Public Use
  Company Number: AU-BRISTOL-MYERS SQUIBB COMPANY-13541768

PATIENT
  Age: 85 Year
  Sex: Female
  Weight: 50 kg

DRUGS (7)
  1. KARVEZIDE TABS 300MG/12.5MG [Suspect]
     Indication: HYPERTENSION
     Route: 048
     Dates: end: 20060320
  2. BETALOC [Concomitant]
  3. NORVASC [Concomitant]
  4. PROGOUT [Concomitant]
     Indication: GOUT
  5. ZOLOFT [Concomitant]
     Indication: DEPRESSION
  6. TEMAZE [Concomitant]
     Indication: SLEEP DISORDER
  7. TIMOPTIC [Concomitant]

REACTIONS (2)
  - HYPOKALAEMIA [None]
  - HYPONATRAEMIA [None]
